FAERS Safety Report 5157932-9 (Version None)
Quarter: 2006Q4

REPORT INFORMATION
  Report Type: 
  Country: None (occurrence: None)
  Receive Date: 20061115
  Receipt Date: 20061031
  Transmission Date: 20070319
  Serious: Yes (Other)
  Sender: FDA-Public Use
  Company Number: 2006139803

PATIENT
  Age: 62 Year
  Sex: Male

DRUGS (1)
  1. ROGAINE EXTRA STRENGTH (FOR MEN) [Suspect]
     Indication: ALOPECIA
     Dosage: UNSPECIFIED DOSAGE TWICE DAILY, TOPICAL
     Route: 061
     Dates: start: 20050101

REACTIONS (1)
  - INTRAOCULAR PRESSURE INCREASED [None]
